FAERS Safety Report 7308229-X (Version None)
Quarter: 2011Q1

REPORT INFORMATION
  Report Type: 
  Country: None (occurrence: None)
  Receive Date: 20110223
  Receipt Date: 20110214
  Transmission Date: 20110831
  Serious: Yes (Disabling)
  Sender: FDA-Public Use
  Company Number: B0689896A

PATIENT
  Sex: Male
  Weight: 93 kg

DRUGS (4)
  1. GARLIC [Concomitant]
  2. COD LIVER OIL [Concomitant]
  3. MULTI-VITAMINS [Concomitant]
  4. ALLI [Suspect]
     Dosage: 60MG TWICE PER DAY
     Route: 048
     Dates: start: 20101120, end: 20101211

REACTIONS (5)
  - EPISTAXIS [None]
  - LIPIDS INCREASED [None]
  - HEADACHE [None]
  - HYPERTENSION [None]
  - BLOOD TRIGLYCERIDES INCREASED [None]
